FAERS Safety Report 6779169-X (Version None)
Quarter: 2010Q2

REPORT INFORMATION
  Report Type: 
  Country: None (occurrence: None)
  Receive Date: 20100618
  Receipt Date: 20100607
  Transmission Date: 20101027
  Serious: Yes (Hospitalization)
  Sender: FDA-Public Use
  Company Number: FR-ROCHE-662530

PATIENT
  Sex: Female

DRUGS (3)
  1. PEGASYS [Suspect]
     Route: 065
     Dates: start: 20080615
  2. PEGASYS [Suspect]
     Route: 065
     Dates: start: 20090101
  3. COPEGUS [Suspect]
     Route: 065
     Dates: start: 20080615

REACTIONS (9)
  - DEAFNESS [None]
  - DEPRESSION [None]
  - DIABETES MELLITUS [None]
  - KETOACIDOSIS [None]
  - LUNG DISORDER [None]
  - MYOCARDIAL ISCHAEMIA [None]
  - PANCYTOPENIA [None]
  - RENAL FAILURE ACUTE [None]
  - SUICIDAL IDEATION [None]
